FAERS Safety Report 10209343 (Version 1)
Quarter: 2014Q2

REPORT INFORMATION
  Report Type: Spontaneous
  Country: GB (occurrence: GB)
  Receive Date: 20140531
  Receipt Date: 20140531
  Transmission Date: 20141212
  Serious: Yes (Other)
  Sender: FDA-Public Use
  Company Number: GB-AMGEN INC.-GBRSP2014039165

PATIENT
  Age: 31 Year
  Sex: Male

DRUGS (1)
  1. ARANESP [Suspect]
     Indication: PRODUCT USED FOR UNKNOWN INDICATION
     Dosage: 40 MUG, Q2WK
     Route: 065
     Dates: start: 201310

REACTIONS (5)
  - Pyrexia [Unknown]
  - Confusional state [Unknown]
  - Agitation [Unknown]
  - Epistaxis [Unknown]
  - Nausea [Unknown]
